FAERS Safety Report 6733179-7 (Version None)
Quarter: 2010Q2

REPORT INFORMATION
  Report Type: 
  Country: None (occurrence: None)
  Receive Date: 20100520
  Receipt Date: 20100511
  Transmission Date: 20101027
  Serious: Yes (Hospitalization)
  Sender: FDA-Public Use
  Company Number: 2006BI004048

PATIENT
  Age: 52 Year
  Sex: Female

DRUGS (16)
  1. AVONEX [Suspect]
     Indication: RELAPSING-REMITTING MULTIPLE SCLEROSIS
     Route: 030
     Dates: start: 20001101
  2. SOLU-MEDROL [Concomitant]
  3. EFFEXOR [Concomitant]
  4. ALLEGRA [Concomitant]
  5. NEURONTIN [Concomitant]
  6. GLUCOPHAGE [Concomitant]
  7. OXYBUTYNIN [Concomitant]
  8. PREVACID [Concomitant]
  9. CLONAZEPAM [Concomitant]
  10. ASPIRIN [Concomitant]
  11. BUSPAR [Concomitant]
  12. ADDERALL 30 [Concomitant]
  13. FUROSEMIDE [Concomitant]
  14. EVISTA [Concomitant]
  15. ZOCOR [Concomitant]
  16. BACLOFEN [Concomitant]

REACTIONS (7)
  - BREAST CANCER [None]
  - BREAST CANCER IN SITU [None]
  - CORONARY ARTERY OCCLUSION [None]
  - DIABETES MELLITUS [None]
  - OPEN WOUND [None]
  - SKIN LESION [None]
  - WOUND INFECTION FUNGAL [None]
